FAERS Safety Report 21354452 (Version 1)
Quarter: 2022Q3

REPORT INFORMATION
  Report Type: Report from Study
  Country: US (occurrence: US)
  Receive Date: 20220920
  Receipt Date: 20220920
  Transmission Date: 20221026
  Serious: Yes (Other)
  Sender: FDA-Public Use
  Company Number: US-BRISTOL-MYERS SQUIBB COMPANY-2022-094636

PATIENT
  Age: 70 Year
  Sex: Male
  Weight: 86.18 kg

DRUGS (2)
  1. REVLIMID [Suspect]
     Active Substance: LENALIDOMIDE
     Indication: Plasma cell myeloma
     Dosage: DAILY, -TAKE 1 CAPSULE DAILY FOR 21 DAYS, THEN 7 DAYS OFF OF A 28 DAY CYCLE
     Route: 048
     Dates: start: 20210923
  2. ASPIRIN [Suspect]
     Active Substance: ASPIRIN
     Indication: Product used for unknown indication
     Route: 065

REACTIONS (5)
  - Haemorrhage [Unknown]
  - COVID-19 [Unknown]
  - Diarrhoea [Unknown]
  - Blood blister [Unknown]
  - Dehydration [Unknown]

NARRATIVE: CASE EVENT DATE: 20220723
